FAERS Safety Report 18473910 (Version 1)
Quarter: 2020Q4

REPORT INFORMATION
  Report Type: Spontaneous
  Country: US (occurrence: US)
  Receive Date: 20201106
  Receipt Date: 20201106
  Transmission Date: 20210114
  Serious: Yes (Other)
  Sender: FDA-Public Use
  Company Number: US-CHIESI USA, INC.-US-2020CHI000649

PATIENT

DRUGS (2)
  1. CUROSURF [Suspect]
     Active Substance: PORACTANT ALFA
     Indication: NEONATAL RESPIRATORY DISTRESS SYNDROME
     Dosage: 1 DF, SINGLE
     Route: 065
     Dates: start: 202010, end: 202010
  2. CUROSURF [Suspect]
     Active Substance: PORACTANT ALFA
     Dosage: 1 DF, SINGLE
     Route: 065
     Dates: start: 202010, end: 202010

REACTIONS (2)
  - Pulmonary haemorrhage neonatal [Unknown]
  - Inappropriate schedule of product administration [Unknown]

NARRATIVE: CASE EVENT DATE: 202010
